FAERS Safety Report 4998960-3 (Version None)
Quarter: 2006Q2

REPORT INFORMATION
  Report Type: 
  Country: None (occurrence: None)
  Receive Date: 20060510
  Receipt Date: 20060125
  Transmission Date: 20061013
  Serious: Yes (Death, Hospitalization, Other)
  Sender: FDA-Public Use
  Company Number: US-MERCK-0601USA03072

PATIENT
  Age: 60 Year
  Sex: Female
  Weight: 81 kg

DRUGS (11)
  1. VIOXX [Suspect]
     Indication: ARTHRITIS
     Route: 048
     Dates: start: 20000209, end: 20000417
  2. FUROSEMIDE [Concomitant]
     Route: 065
  3. K-DUR 10 [Concomitant]
     Route: 065
  4. HYDROCODONE HYDROCHLORIDE [Concomitant]
     Route: 065
  5. PROCHLORPERAZINE [Concomitant]
     Route: 065
  6. ATROPINE SULFATE AND DIPHENOXYLATE HYDROCHLORIDE [Concomitant]
     Route: 065
  7. METOCLOPRAMIDE [Concomitant]
     Route: 065
  8. GLUCOPHAGE [Concomitant]
     Route: 065
  9. HUMULIN 70/30 [Concomitant]
     Route: 065
  10. REGLAN [Concomitant]
     Route: 065
  11. COZAAR [Concomitant]
     Route: 065

REACTIONS (8)
  - CARDIO-RESPIRATORY ARREST [None]
  - CEREBROVASCULAR ACCIDENT [None]
  - CONVULSION [None]
  - DYSPNOEA [None]
  - MYOCARDIAL INFARCTION [None]
  - RENAL ARTERY STENOSIS [None]
  - SHOULDER PAIN [None]
  - TRANSIENT ISCHAEMIC ATTACK [None]
